FAERS Safety Report 22604930 (Version 1)
Quarter: 2023Q2

REPORT INFORMATION
  Report Type: Spontaneous
  Country: NL (occurrence: NL)
  Receive Date: 20230615
  Receipt Date: 20230615
  Transmission Date: 20230721
  Serious: Yes (Hospitalization)
  Sender: FDA-Public Use
  Company Number: None

PATIENT
  Sex: Male

DRUGS (6)
  1. PREDNISOLONE [Suspect]
     Active Substance: PREDNISOLONE
     Indication: Inflammation
     Dosage: 40 MILLIGRAM DAILY; 2 TABLETS IN THE MORNING   , BRAND NAME NOT SPECIFIED
     Dates: start: 20230426
  2. LISDEXAMFETAMINE DIMESYLATE [Suspect]
     Active Substance: LISDEXAMFETAMINE DIMESYLATE
     Indication: Attention deficit hyperactivity disorder
     Dosage: 70 MILLIGRAM DAILY;  1 CAPSULE IN THE MORNING  , LISDEXAMPHETAMINE
     Dates: start: 20200206
  3. FLUTICASONE [Concomitant]
     Active Substance: FLUTICASONE
     Indication: Product used for unknown indication
     Dosage: BRAND NAME NOT SPECIFIED
  4. OMEPRAZOLE [Concomitant]
     Active Substance: OMEPRAZOLE
     Indication: Product used for unknown indication
     Dosage: BRAND NAME NOT SPECIFIED
  5. DESOXIMETASONE [Concomitant]
     Active Substance: DESOXIMETASONE
     Indication: Product used for unknown indication
     Dosage: SPREAD (EMULSION ) O/W EMULSION
  6. SERETIDE [Concomitant]
     Active Substance: FLUTICASONE PROPIONATE\SALMETEROL XINAFOATE
     Indication: Product used for unknown indication
     Dosage: 50/500 UG/DOSE (MICROGRAMS PER DOSE) , SALMETEROL/FLUTICASON  / DISKUS INHPDR 50/500MCG 60DO

REACTIONS (7)
  - Palpitations [Recovered/Resolved]
  - Chest pain [Recovered/Resolved]
  - Tachycardia [Recovered/Resolved]
  - Heart rate increased [Recovered/Resolved]
  - Blood pressure increased [Recovered/Resolved]
  - Paraesthesia oral [Recovered/Resolved]
  - Oral discomfort [Recovered/Resolved]
